FAERS Safety Report 4803379-1 (Version None)
Quarter: 2005Q4

REPORT INFORMATION
  Report Type: 
  Country: None (occurrence: None)
  Receive Date: 20051019
  Receipt Date: 20051007
  Transmission Date: 20060501
  Serious: Yes (Hospitalization)
  Sender: FDA-Public Use
  Company Number: FR-JNJFOC-20050400398

PATIENT
  Age: 53 Year
  Sex: Male

DRUGS (11)
  1. RISPERDAL [Suspect]
     Indication: DRUG USE FOR UNKNOWN INDICATION
     Route: 048
     Dates: start: 20040101, end: 20050218
  2. MEPRONIZINE [Concomitant]
  3. MEPRONIZINE [Concomitant]
  4. CLONAZEPAM [Concomitant]
  5. VIVALAN [Concomitant]
  6. AKINETON [Concomitant]
  7. ZESTRIL [Concomitant]
  8. PREVISCAN [Concomitant]
  9. TEMESTA [Concomitant]
  10. LOXEN [Concomitant]
  11. TENORMIN [Concomitant]

REACTIONS (11)
  - AGITATION [None]
  - BLOOD CREATINE PHOSPHOKINASE INCREASED [None]
  - COMA [None]
  - DISORIENTATION [None]
  - ECCHYMOSIS [None]
  - FALL [None]
  - HYPONATRAEMIA [None]
  - INAPPROPRIATE ANTIDIURETIC HORMONE SECRETION [None]
  - PROTHROMBIN TIME PROLONGED [None]
  - TREMOR [None]
  - WATER INTOXICATION [None]
